FAERS Safety Report 7224487-4 (Version None)
Quarter: 2011Q1

REPORT INFORMATION
  Report Type: 
  Country: None (occurrence: None)
  Receive Date: 20110113
  Receipt Date: 20110106
  Transmission Date: 20110831
  Serious: Yes (Other)
  Sender: FDA-Public Use
  Company Number: US-PFIZER INC-2010120530

PATIENT
  Sex: Male

DRUGS (1)
  1. CHANTIX [Suspect]
     Indication: SMOKING CESSATION THERAPY
     Dosage: UNK
     Dates: start: 20070901, end: 20080101

REACTIONS (8)
  - AGITATION [None]
  - ABNORMAL DREAMS [None]
  - MOOD SWINGS [None]
  - PARANOIA [None]
  - ANXIETY [None]
  - SUICIDAL IDEATION [None]
  - DEPRESSION [None]
  - ANGER [None]
